FAERS Safety Report 6142075-8 (Version None)
Quarter: 2009Q1

REPORT INFORMATION
  Report Type: 
  Country: None (occurrence: None)
  Receive Date: 20090331
  Receipt Date: 20090331
  Transmission Date: 20090719
  Serious: No
  Sender: FDA-Public Use
  Company Number: None

PATIENT
  Age: 41 Year
  Sex: Female
  Weight: 65.7716 kg

DRUGS (2)
  1. YAZ [Suspect]
     Indication: CYST
     Dosage: 1 PILL DAILY PO
     Route: 048
     Dates: start: 20090322, end: 20090327
  2. YAZ [Suspect]
     Indication: PROPHYLAXIS
     Dosage: 1 PILL DAILY PO
     Route: 048
     Dates: start: 20090322, end: 20090327

REACTIONS (6)
  - ABDOMINAL PAIN UPPER [None]
  - CHEST PAIN [None]
  - CHILLS [None]
  - DIZZINESS [None]
  - NAUSEA [None]
  - PARAESTHESIA [None]
